FAERS Safety Report 4302344-0 (Version None)
Quarter: 2004Q1

REPORT INFORMATION
  Report Type: 
  Country: None (occurrence: None)
  Receive Date: 20040220
  Receipt Date: 20040210
  Transmission Date: 20041129
  Serious: Yes (Hospitalization)
  Sender: FDA-Public Use
  Company Number: 863

PATIENT
  Sex: Female

DRUGS (2)
  1. ENALAPRIL MALEATE TABLETS, 20 MG, GENPHARM [Suspect]
     Indication: HYPERTENSION
     Dosage: 20 MG PO BID
     Route: 048
     Dates: start: 20030901
  2. ASPIRIN [Concomitant]

REACTIONS (4)
  - ELECTROCARDIOGRAM ABNORMAL [None]
  - HYPERTENSION [None]
  - PHARMACEUTICAL PRODUCT COMPLAINT [None]
  - VENTRICULAR EXTRASYSTOLES [None]
